FAERS Safety Report 24614108 (Version 1)
Quarter: 2024Q4

REPORT INFORMATION
  Report Type: Spontaneous
  Country: US (occurrence: US)
  Receive Date: 20241113
  Receipt Date: 20241113
  Transmission Date: 20250114
  Serious: No
  Sender: GALDERMA
  Company Number: US-GALDERMA-US2024015243

PATIENT

DRUGS (1)
  1. DIFFERIN GEL [Suspect]
     Active Substance: ADAPALENE
     Indication: Product used for unknown indication
     Dosage: 1 DOSAGE FORM
     Route: 061

REACTIONS (6)
  - Skin swelling [Recovered/Resolved]
  - Skin burning sensation [Recovered/Resolved]
  - Pain of skin [Recovered/Resolved]
  - Rosacea [Recovered/Resolved]
  - Dyspnoea [Recovered/Resolved]
  - Skin irritation [Recovered/Resolved]
